FAERS Safety Report 20727061 (Version 1)
Quarter: 2022Q2

REPORT INFORMATION
  Report Type: Other
  Country: PH (occurrence: None)
  Receive Date: 20220419
  Receipt Date: 20220419
  Transmission Date: 20220721
  Serious: Yes (Other)
  Sender: FDA-Public Use
  Company Number: PH-ROCHE-3071699

PATIENT
  Age: 62 Year
  Sex: Male

DRUGS (3)
  1. AVASTIN [Suspect]
     Active Substance: BEVACIZUMAB
     Indication: Non-small cell lung cancer metastatic
     Dosage: 400MG 1VIAL AVASTIN EVERY 21 DAYS
     Route: 042
  2. LOSARTAN [Concomitant]
     Active Substance: LOSARTAN
     Route: 048
  3. METFORMIN [Concomitant]
     Active Substance: METFORMIN HYDROCHLORIDE
     Route: 048

REACTIONS (2)
  - Metastases to lung [Unknown]
  - Drug ineffective [Unknown]
